FAERS Safety Report 14096324 (Version 1)
Quarter: 2017Q4

REPORT INFORMATION
  Report Type: Spontaneous
  Country: FR (occurrence: FR)
  Receive Date: 20171017
  Receipt Date: 20171017
  Transmission Date: 20180321
  Serious: Yes (Other)
  Sender: FDA-Public Use
  Company Number: FR-MERCK KGAA-2030266

PATIENT
  Age: 71 Year
  Sex: Female

DRUGS (1)
  1. NOVOTHYROX [Suspect]
     Active Substance: LEVOTHYROXINE SODIUM
     Indication: HYPOTHYROIDISM
     Route: 048
     Dates: start: 2017

REACTIONS (11)
  - Muscle spasms [Unknown]
  - Eye disorder [Unknown]
  - Alopecia [Unknown]
  - Palpitations [Unknown]
  - Hot flush [Unknown]
  - Dry mouth [Unknown]
  - Somnolence [Unknown]
  - Thirst [Unknown]
  - Dizziness [Unknown]
  - Headache [Unknown]
  - Blood thyroid stimulating hormone normal [Unknown]

NARRATIVE: CASE EVENT DATE: 201706
